FAERS Safety Report 19212514 (Version 1)
Quarter: 2021Q2

REPORT INFORMATION
  Report Type: Report from Study
  Country: CA (occurrence: CA)
  Receive Date: 20210504
  Receipt Date: 20210504
  Transmission Date: 20210717
  Serious: Yes (Other)
  Sender: FDA-Public Use
  Company Number: CA-REGENERON PHARMACEUTICALS, INC.-2021-47089

PATIENT

DRUGS (1)
  1. EYLEA [Suspect]
     Active Substance: AFLIBERCEPT
     Indication: NEOVASCULAR AGE-RELATED MACULAR DEGENERATION
     Dosage: UNK, UNK, EYE UNK; TOTAL NUMBER OF DOSES UNK; LAST DOSE UNK
     Dates: start: 20210325

REACTIONS (3)
  - Adverse event [Unknown]
  - Blindness [Unknown]
  - Cataract operation [Unknown]

NARRATIVE: CASE EVENT DATE: 20210325
